FAERS Safety Report 15082634 (Version 10)
Quarter: 2025Q3

REPORT INFORMATION
  Report Type: Spontaneous
  Country: EU (occurrence: EU)
  Receive Date: 20180628
  Receipt Date: 20250711
  Transmission Date: 20251021
  Serious: Yes (Hospitalization, Other)
  Sender: MYLAN
  Company Number: None

PATIENT
  Age: 35 Year
  Sex: Female

DRUGS (10)
  1. EMTRICITABINE\TENOFOVIR DISOPROXIL [Interacting]
     Active Substance: EMTRICITABINE\TENOFOVIR DISOPROXIL
     Indication: HIV infection
     Dosage: 1 DOSAGE FORM, QD,(300/200 MG ONCE DAILY)
  2. TENOFOVIR [Interacting]
     Active Substance: TENOFOVIR
     Indication: HIV infection
     Dosage: 300 MILLIGRAM, QD
  3. RITONAVIR [Interacting]
     Active Substance: RITONAVIR
     Indication: HIV infection
     Dosage: 100 MILLIGRAM, QD
  4. ATAZANAVIR [Interacting]
     Active Substance: ATAZANAVIR
     Indication: HIV infection
     Dosage: 300 MILLIGRAM, QD
  5. EMTRICITABINE [Interacting]
     Active Substance: EMTRICITABINE
     Indication: HIV infection
     Dosage: 200 MILLIGRAM, QD
  6. TIVICAY [Interacting]
     Active Substance: DOLUTEGRAVIR SODIUM
     Indication: HIV infection
     Dosage: 50 MILLIGRAM, QD
  7. ATAZANAVIR\RITONAVIR [Interacting]
     Active Substance: ATAZANAVIR\RITONAVIR
     Indication: HIV infection
     Dosage: 100 MG, QD (300/100 MG ONCE DAILY)
  8. ATAZANAVIR\RITONAVIR [Interacting]
     Active Substance: ATAZANAVIR\RITONAVIR
     Dosage: 400 MILLIGRAM, QD
  9. PENTOXIFYLLINE [Concomitant]
     Active Substance: PENTOXIFYLLINE
     Indication: Product used for unknown indication
  10. Previscan [Concomitant]
     Indication: Product used for unknown indication

REACTIONS (13)
  - Drug resistance [Unknown]
  - Virologic failure [Recovered/Resolved]
  - Premature rupture of membranes [Recovered/Resolved]
  - Premature delivery [Recovered/Resolved]
  - Drug level increased [Unknown]
  - Viral load increased [Recovered/Resolved]
  - Drug ineffective [Unknown]
  - Maternal exposure during pregnancy [Recovered/Resolved]
  - Drug abuse [Unknown]
  - Intentional product misuse [Unknown]
  - Caesarean section [Unknown]
  - Off label use [Unknown]
  - Drug interaction [Unknown]
